FAERS Safety Report 5113030-1 (Version None)
Quarter: 2006Q3

REPORT INFORMATION
  Report Type: 
  Country: None (occurrence: None)
  Receive Date: 20060920
  Receipt Date: 20060908
  Transmission Date: 20061208
  Serious: Yes (Hospitalization, Other)
  Sender: FDA-Public Use
  Company Number: 2006109739

PATIENT
  Sex: Female

DRUGS (1)
  1. DETROL LA [Suspect]
     Indication: DRUG USE FOR UNKNOWN INDICATION
     Dosage: 1 MG (1 MG, AS NECESSARY),

REACTIONS (4)
  - FALL [None]
  - HIP FRACTURE [None]
  - NOCTURIA [None]
  - POLLAKIURIA [None]
